FAERS Safety Report 7585276-4 (Version None)
Quarter: 2011Q3

REPORT INFORMATION
  Report Type: 
  Country: None (occurrence: None)
  Receive Date: 20110701
  Receipt Date: 20110627
  Transmission Date: 20111222
  Serious: Yes (Other)
  Sender: FDA-Public Use
  Company Number: US-SHIRE-ALL1-2011-02049

PATIENT
  Age: 12 Year
  Sex: Male
  Weight: 25.397 kg

DRUGS (2)
  1. INTUNIV [Suspect]
     Dosage: 1 MG, 1X/DAY:QD
     Route: 048
     Dates: start: 20110101, end: 20110101
  2. INTUNIV [Suspect]
     Indication: ATTENTION DEFICIT/HYPERACTIVITY DISORDER
     Dosage: 2 MG, 1X/DAY:QD
     Route: 048
     Dates: start: 20110101, end: 20110101

REACTIONS (4)
  - DIZZINESS [None]
  - SYNCOPE [None]
  - URINARY INCONTINENCE [None]
  - BLOOD POTASSIUM DECREASED [None]
